FAERS Safety Report 9975893 (Version 1)
Quarter: 2014Q1

REPORT INFORMATION
  Report Type: Spontaneous
  Country: US (occurrence: US)
  Receive Date: 20140306
  Receipt Date: 20140306
  Transmission Date: 20141002
  Serious: Yes (Life-Threatening, Other)
  Sender: FDA-Public Use
  Company Number: US-ROXANE LABORATORIES, INC.-2014-RO-00340RO

PATIENT
  Age: 31 Year
  Sex: Male

DRUGS (6)
  1. METHADONE [Suspect]
     Indication: PAIN
     Dosage: 240 MG
     Route: 065
  2. OXYCODONE [Suspect]
     Indication: PAIN
     Route: 065
  3. FENTANYL [Suspect]
     Indication: PAIN
     Route: 065
  4. KETOROLAC [Suspect]
     Indication: PAIN
     Route: 065
  5. GABAPENTIN [Suspect]
     Indication: PAIN
     Route: 065
  6. VENLAFAXINE [Suspect]
     Indication: PAIN
     Route: 065

REACTIONS (3)
  - Sickle cell anaemia with crisis [Unknown]
  - Pneumonia [Unknown]
  - Hyperaesthesia [Unknown]
